FAERS Safety Report 20518332 (Version 4)
Quarter: 2022Q3

REPORT INFORMATION
  Report Type: Spontaneous
  Country: FR (occurrence: FR)
  Receive Date: 20220225
  Receipt Date: 20220904
  Transmission Date: 20221026
  Serious: Yes (Other)
  Sender: FDA-Public Use
  Company Number: FR-BRISTOL-MYERS SQUIBB COMPANY-BMS-2022-026168

PATIENT
  Age: 85 Year
  Sex: Male
  Weight: 89 kg

DRUGS (7)
  1. NIVOLUMAB [Suspect]
     Active Substance: NIVOLUMAB
     Indication: Pleural mesothelioma malignant
     Dosage: 360 MILLIGRAM, Q3WK?(6 DOSE RECEIVED SINCE THE FIRST ADMINISTRATION)
     Route: 042
     Dates: start: 20210923, end: 20211014
  2. NIVOLUMAB [Suspect]
     Active Substance: NIVOLUMAB
     Dosage: 360 MILLIGRAM, Q3WK
     Route: 042
     Dates: start: 20211022, end: 20220215
  3. IPILIMUMAB [Suspect]
     Active Substance: IPILIMUMAB
     Indication: Pleural mesothelioma malignant
     Dosage: 1 MILLIGRAM/KILOGRAM, Q6WK?(3 DOSE RECEIVED SINCE THE FIRST ADMINISTRATION)
     Route: 042
     Dates: start: 20210923, end: 20211014
  4. IPILIMUMAB [Suspect]
     Active Substance: IPILIMUMAB
     Dosage: 1 MILLIGRAM/KILOGRAM, Q6WK
     Route: 042
     Dates: start: 20211022, end: 20220215
  5. IPILIMUMAB [Suspect]
     Active Substance: IPILIMUMAB
     Route: 065
  6. IPILIMUMAB [Suspect]
     Active Substance: IPILIMUMAB
     Dosage: REDUCED FROM 89  MG TO 87 MG TO ADAPT WITH PATIENT WEIGHT.
     Route: 065
     Dates: start: 20211119
  7. IPILIMUMAB [Suspect]
     Active Substance: IPILIMUMAB
     Dosage: REDUCED FROM 87  MG TO 89 MG TO ADAPT WITH PATIENT WEIGHT.
     Route: 065
     Dates: start: 20211217

REACTIONS (4)
  - Malignant neoplasm progression [Unknown]
  - Agranulocytosis [Unknown]
  - Hyperthyroidism [Unknown]
  - Hypothyroidism [Unknown]

NARRATIVE: CASE EVENT DATE: 20211217
